FAERS Safety Report 6673803-0 (Version None)
Quarter: 2010Q2

REPORT INFORMATION
  Report Type: 
  Country: None (occurrence: None)
  Receive Date: 20100407
  Receipt Date: 20100325
  Transmission Date: 20101027
  Serious: Yes (Hospitalization)
  Sender: FDA-Public Use
  Company Number: US-JNJFOC-20100307359

PATIENT
  Age: 48 Year
  Sex: Male
  Weight: 105 kg

DRUGS (4)
  1. DECITABINE (DECITABINE) LYOPHILIZED POWDER [Suspect]
     Indication: ACUTE MYELOID LEUKAEMIA
     Dosage: 20 MG/M2, INTRAVENOUS; CYCLE 4
     Route: 042
     Dates: start: 20090511, end: 20090515
  2. DECITABINE (DECITABINE) LYOPHILIZED POWDER [Suspect]
     Indication: ACUTE MYELOID LEUKAEMIA
     Dosage: 20 MG/M2, INTRAVENOUS; CYCLE 4
     Route: 042
     Dates: start: 20090209
  3. DECITABINE (DECITABINE) LYOPHILIZED POWDER [Suspect]
     Indication: ACUTE MYELOID LEUKAEMIA
     Dosage: 20 MG/M2, INTRAVENOUS; CYCLE 4
     Route: 042
     Dates: start: 20090622
  4. LEVAQUIN [Concomitant]

REACTIONS (9)
  - DIZZINESS [None]
  - HYPERHIDROSIS [None]
  - LOSS OF CONSCIOUSNESS [None]
  - NAUSEA [None]
  - NEUTROPENIA [None]
  - PALLOR [None]
  - PNEUMONIA [None]
  - SYNCOPE [None]
  - THROMBOCYTOPENIA [None]
